FAERS Safety Report 6924429-2 (Version None)
Quarter: 2010Q3

REPORT INFORMATION
  Report Type: 
  Country: None (occurrence: None)
  Receive Date: 20100811
  Receipt Date: 20100727
  Transmission Date: 20110219
  Serious: Yes (Other)
  Sender: FDA-Public Use
  Company Number: US-DEXPHARM-20101 182

PATIENT
  Sex: Female
  Weight: 90.7 kg

DRUGS (8)
  1. OMEPRAZOLE [Suspect]
     Indication: DYSPEPSIA
     Dosage: 20 MG, ORAL
     Route: 048
     Dates: start: 20100726, end: 20100726
  2. METHYLPREDNISOLONE [Concomitant]
  3. LIPITOR [Concomitant]
  4. LEVOTHYROXINE [Concomitant]
  5. FLUOXETINE [Concomitant]
  6. BUSPIRONE HCL [Concomitant]
  7. ADVAIR DISKUS 100/50 [Concomitant]
  8. PROAIR (FLUTICASONE PROPIONATE) [Concomitant]

REACTIONS (1)
  - DRUG HYPERSENSITIVITY [None]
